FAERS Safety Report 9230457 (Version 2)
Quarter: 2013Q2

REPORT INFORMATION
  Report Type: Spontaneous
  Country: ES (occurrence: ES)
  Receive Date: 20130415
  Receipt Date: 20130426
  Transmission Date: 20140414
  Serious: Yes (Other)
  Sender: FDA-Public Use
  Company Number: ES-PFIZER INC-2013113823

PATIENT
  Age: 49 Year
  Sex: Female

DRUGS (9)
  1. SOMAVERT [Suspect]
     Indication: ACROMEGALY
     Dosage: 10 MG, 1X/DAY
     Route: 058
     Dates: start: 20130318, end: 20130404
  2. METFORMIN [Concomitant]
     Indication: DIABETES MELLITUS
     Dosage: 850 MG, 1X/DAY
     Dates: start: 201007
  3. PRAVASTATIN [Concomitant]
     Indication: DYSLIPIDAEMIA
     Dosage: 40 MG, 1X/DAY
  4. LOGIMAX [Concomitant]
     Indication: HYPERTENSION
     Dosage: 5/50
  5. TORASEMIDE [Concomitant]
     Indication: HYPERTENSION
     Dosage: 5 MG, 1X/DAY
     Dates: start: 2010
  6. HIDROFEROL [Concomitant]
     Indication: VITAMIN D DEFICIENCY
     Dosage: 0.266 MG, EVERY 15 DAYS
     Dates: start: 2012
  7. HIDROALTESONA [Concomitant]
     Indication: SECONDARY ADRENOCORTICAL INSUFFICIENCY
     Dosage: 10 MG, 1X/DAY
     Dates: start: 201207
  8. SOMATULINE AUTOGEL [Concomitant]
     Indication: ACROMEGALY
     Dosage: 90 MG, EVERY 28 DAYS
     Dates: start: 201007, end: 201101
  9. SOMATULINE AUTOGEL [Concomitant]
     Dosage: 120 MG, EVERY 28 DAYS
     Dates: start: 201101, end: 201303

REACTIONS (3)
  - Drug hypersensitivity [Recovered/Resolved]
  - Rash papular [Recovered/Resolved]
  - Oedema peripheral [Recovered/Resolved]
